FAERS Safety Report 9772606 (Version 2)
Quarter: 2013Q4

REPORT INFORMATION
  Report Type: Spontaneous
  Country: US (occurrence: US)
  Receive Date: 20131219
  Receipt Date: 20131223
  Transmission Date: 20140711
  Serious: Yes (Hospitalization, Other)
  Sender: FDA-Public Use
  Company Number: US-PFIZER INC-2013362992

PATIENT
  Age: 72 Year
  Sex: Female

DRUGS (1)
  1. XELJANZ [Suspect]
     Indication: RHEUMATOID ARTHRITIS
     Dosage: 5 MG, 1 TABLET TWICE A DAY
     Route: 048
     Dates: start: 201309

REACTIONS (2)
  - Pneumonia [Recovered/Resolved]
  - Fatigue [Not Recovered/Not Resolved]
